FAERS Safety Report 10221135 (Version 3)
Quarter: 2015Q1

REPORT INFORMATION
  Report Type: Spontaneous
  Country: US (occurrence: US)
  Receive Date: 20140606
  Receipt Date: 20150129
  Transmission Date: 20150720
  Serious: Yes (Other)
  Sender: FDA-Public Use
  Company Number: US-PFIZER INC-2014154796

PATIENT
  Age: 57 Year
  Sex: Male
  Weight: 73 kg

DRUGS (10)
  1. BENZTROPINE MESILATE [Concomitant]
     Active Substance: BENZTROPINE MESYLATE
     Dosage: 1 MG, 1X/DAY (QAM)
     Dates: start: 20141016
  2. CELEXA [Concomitant]
     Active Substance: CITALOPRAM HYDROBROMIDE
     Dosage: 200 MG, 1X/DAY
     Dates: start: 20141016
  3. HALDOL [Concomitant]
     Active Substance: HALOPERIDOL
     Dosage: 100 MG, MONTHLY
     Route: 030
     Dates: start: 20141016
  4. CELEBREX [Suspect]
     Active Substance: CELECOXIB
     Dosage: 200 MG, 1X/DAY
     Dates: start: 20141016
  5. ASPIRIN. [Concomitant]
     Active Substance: ASPIRIN
     Dosage: 81 MG, UNK
     Dates: start: 20141016
  6. ASA [Concomitant]
     Active Substance: ASPIRIN
     Dosage: 81 MG, 2X/DAY
     Dates: start: 20141016
  7. VITAMIN B12 [Concomitant]
     Active Substance: CYANOCOBALAMIN
     Dosage: UNK, MONTHLY
     Dates: start: 20141016
  8. CELEBREX [Suspect]
     Active Substance: CELECOXIB
     Indication: ARTHRALGIA
     Dosage: 200 MG, 1X/DAY
     Route: 048
  9. PLAVIX [Concomitant]
     Active Substance: CLOPIDOGREL BISULFATE
     Dosage: 70 MG, 1X/DAY
     Dates: start: 20141016
  10. NEXIUM [Concomitant]
     Active Substance: ESOMEPRAZOLE MAGNESIUM
     Dosage: 40 MG, 1X/DAY
     Dates: start: 20141016

REACTIONS (2)
  - Bipolar disorder [Unknown]
  - Schizophrenia [Unknown]

NARRATIVE: CASE EVENT DATE: 201105
